FAERS Safety Report 5579019-3 (Version None)
Quarter: 2007Q4

REPORT INFORMATION
  Report Type: 
  Country: None (occurrence: None)
  Receive Date: 20071228
  Receipt Date: 20071218
  Transmission Date: 20080405
  Serious: Yes (Hospitalization)
  Sender: FDA-Public Use
  Company Number: 2007US001367

PATIENT
  Age: 5 Year
  Sex: Female
  Weight: 24.5 kg

DRUGS (18)
  1. PROGRAF [Suspect]
     Indication: RENAL TRANSPLANT
     Dosage: 4 MG, BID
     Dates: start: 20070406
  2. ZENAPAX [Suspect]
     Indication: RENAL TRANSPLANT
     Dosage: SEE IMAGE
     Route: 042
     Dates: start: 20060526, end: 20060526
  3. ZENAPAX [Suspect]
     Indication: RENAL TRANSPLANT
     Dosage: SEE IMAGE
     Route: 042
     Dates: start: 20060608, end: 20060608
  4. ZENAPAX [Suspect]
     Indication: RENAL TRANSPLANT
     Dosage: SEE IMAGE
     Route: 042
     Dates: start: 20060706, end: 20060706
  5. ZENAPAX [Suspect]
     Indication: RENAL TRANSPLANT
     Dosage: SEE IMAGE
     Route: 042
     Dates: start: 20060720, end: 20060720
  6. ZENAPAX [Suspect]
     Indication: RENAL TRANSPLANT
     Dosage: SEE IMAGE
     Route: 042
     Dates: start: 20060810, end: 20060810
  7. ZENAPAX [Suspect]
     Indication: RENAL TRANSPLANT
     Dosage: SEE IMAGE
     Route: 042
     Dates: start: 20060925, end: 20060925
  8. ZENAPAX [Suspect]
     Indication: RENAL TRANSPLANT
     Dosage: SEE IMAGE
     Route: 042
     Dates: start: 20061026, end: 20061026
  9. ZENAPAX [Suspect]
     Indication: RENAL TRANSPLANT
     Dosage: SEE IMAGE
     Route: 042
     Dates: start: 20061127, end: 20061127
  10. RANITIDINE HCL [Concomitant]
  11. ARANESP [Concomitant]
  12. EMLA (LIDOCAINE, PRILOCAINE) [Concomitant]
  13. NEUTRA-PHOS (SODIUM PHOSPHATE DIBASIC, POTASSIUM PHSOPHATE DIBASIC, SO [Concomitant]
  14. BICITRA (SODIUM CITRATE, CITRIC ACID) [Concomitant]
  15. ICAR (IRON PENTACARBONYL) [Concomitant]
  16. FURADANTIN [Concomitant]
  17. CELLCEPT [Concomitant]
  18. PREDNISOLONE ACETATE [Concomitant]

REACTIONS (2)
  - PYELONEPHRITIS [None]
  - URINARY TRACT INFECTION ENTEROCOCCAL [None]
